FAERS Safety Report 24711391 (Version 1)
Quarter: 2024Q4

REPORT INFORMATION
  Report Type: Spontaneous
  Country: AR (occurrence: AR)
  Receive Date: 20241209
  Receipt Date: 20241209
  Transmission Date: 20250115
  Serious: Yes (Other)
  Sender: PFIZER
  Company Number: AR-PFIZER INC-202400195045

PATIENT
  Age: 80 Year
  Sex: Female

DRUGS (2)
  1. IBRANCE [Suspect]
     Active Substance: PALBOCICLIB
     Indication: Breast cancer metastatic
     Dosage: 75 MG, 1X/DAY, CYCLIC (SCHEME 3X1)
     Dates: start: 20190312, end: 20240628
  2. FULVESTRANT [Concomitant]
     Active Substance: FULVESTRANT

REACTIONS (11)
  - Tooth fracture [Not Recovered/Not Resolved]
  - Dengue fever [Not Recovered/Not Resolved]
  - Capillary fragility [Not Recovered/Not Resolved]
  - Bronchospasm [Not Recovered/Not Resolved]
  - Bronchitis [Unknown]
  - Fatigue [Unknown]
  - Muscular weakness [Unknown]
  - Back pain [Not Recovered/Not Resolved]
  - Cough [Unknown]
  - Decreased appetite [Unknown]
  - Weight decreased [Unknown]
